FAERS Safety Report 8206806-5 (Version None)
Quarter: 2012Q1

REPORT INFORMATION
  Report Type: 
  Country: None (occurrence: None)
  Receive Date: 20120308
  Receipt Date: 20120308
  Transmission Date: 20120608
  Serious: Yes (Life-Threatening)
  Sender: FDA-Public Use
  Company Number: 2012031431

PATIENT

DRUGS (24)
  1. CELEBREX [Concomitant]
  2. MULTIVITAMIN (ACCOMIN MULTIVITAMIN) () [Concomitant]
  3. NASONEX (MOMETASONE EUROATE) () [Concomitant]
  4. BISACODYL [Concomitant]
  5. HYDROMORPHONE HCL [Concomitant]
  6. MAGNESIUM HYDROXIDE TAB [Concomitant]
  7. DANAZOL [Concomitant]
  8. IRBESARTAN [Concomitant]
  9. IBUPROFEN [Concomitant]
  10. DOCUSATE SODIUM (DOCUSATE SODIUM) () [Concomitant]
  11. VICODIN [Concomitant]
  12. ASPIRIN [Concomitant]
  13. VITAMIN D [Concomitant]
  14. DIPHENHYDRAMINE HCL [Concomitant]
  15. BERINERT [Suspect]
     Indication: HEREDITARY ANGIOEDEMA
     Dosage: (INTRAVENOUS (NOT OTHERWISE SPECIFIED))
     Route: 042
     Dates: start: 20120123, end: 20120123
  16. ZOFRAN [Concomitant]
  17. FISH OIL (FISH OIL) () [Concomitant]
  18. BENICAR [Concomitant]
  19. EPHEDRINE SUL CAP [Concomitant]
  20. ANCEF [Concomitant]
  21. TUMS (TUMS /00193601/) () [Concomitant]
  22. OCUVITE (OCUVITE /01053801/) () [Concomitant]
  23. HYDROCODONE BITARTRATE [Concomitant]
  24. NALOXONE [Concomitant]

REACTIONS (2)
  - TRANSIENT ISCHAEMIC ATTACK [None]
  - KNEE ARTHROPLASTY [None]
